FAERS Safety Report 20083448 (Version 1)
Quarter: 2021Q4

REPORT INFORMATION
  Report Type: Spontaneous
  Country: FR (occurrence: FR)
  Receive Date: 20211118
  Receipt Date: 20211118
  Transmission Date: 20220303
  Serious: Yes (Hospitalization, Congenital Anomaly, Other)
  Sender: FDA-Public Use
  Company Number: FR-ABBVIE-21K-056-4162795-00

PATIENT
  Age: 4 Year
  Sex: Male
  Weight: 3 kg

DRUGS (1)
  1. VALPROATE SODIUM [Suspect]
     Active Substance: VALPROATE SODIUM
     Indication: Product used for unknown indication
     Route: 064

REACTIONS (33)
  - Gastrointestinal disorder [Unknown]
  - Gastroenteritis [Unknown]
  - Diarrhoea [Unknown]
  - Dehydration [Unknown]
  - Irritable bowel syndrome [Unknown]
  - Hodgkin^s disease [Unknown]
  - Myopia [Unknown]
  - Astigmatism [Unknown]
  - Hypermetropia [Unknown]
  - Developmental delay [Unknown]
  - Confusional state [Unknown]
  - Learning disability [Unknown]
  - Impaired reasoning [Unknown]
  - Psychomotor skills impaired [Unknown]
  - Cognitive disorder [Unknown]
  - Failure to thrive [Unknown]
  - Dysgraphia [Unknown]
  - Dyscalculia [Unknown]
  - Hypotonia [Unknown]
  - Speech disorder developmental [Unknown]
  - Dysmorphism [Unknown]
  - Memory impairment [Unknown]
  - Torticollis [Unknown]
  - Neck pain [Unknown]
  - Nasopharyngitis [Unknown]
  - Weight abnormal [Unknown]
  - Pharyngeal disorder [Unknown]
  - Nasal disorder [Unknown]
  - Ear disorder [Unknown]
  - Microcytic anaemia [Unknown]
  - Lymphadenopathy [Unknown]
  - Urticaria [Unknown]
  - Enuresis [Unknown]

NARRATIVE: CASE EVENT DATE: 20051201
